FAERS Safety Report 17797549 (Version 1)
Quarter: 2020Q2

REPORT INFORMATION
  Report Type: Spontaneous
  Country: US (occurrence: US)
  Receive Date: 20200515
  Receipt Date: 20200515
  Transmission Date: 20200714
  Serious: Yes (Hospitalization)
  Sender: FDA-Public Use
  Company Number: None

PATIENT
  Age: 8 Year
  Sex: Male
  Weight: 24.3 kg

DRUGS (3)
  1. INTUNIV ER 2MG [Concomitant]
     Dates: start: 20190603
  2. QUILLIVANT XR [Suspect]
     Active Substance: METHYLPHENIDATE HYDROCHLORIDE
     Indication: ATTENTION DEFICIT HYPERACTIVITY DISORDER
     Route: 048
     Dates: start: 20200508
  3. FAMOTIDINE. [Suspect]
     Active Substance: FAMOTIDINE
     Indication: GASTROOESOPHAGEAL REFLUX DISEASE
     Route: 048
     Dates: start: 20200508

REACTIONS (4)
  - Unresponsive to stimuli [None]
  - Drug interaction [None]
  - Lethargy [None]
  - Seizure like phenomena [None]

NARRATIVE: CASE EVENT DATE: 20200511
